FAERS Safety Report 19804265 (Version 1)
Quarter: 2021Q3

REPORT INFORMATION
  Report Type: Spontaneous
  Country: US (occurrence: US)
  Receive Date: 20210908
  Receipt Date: 20210908
  Transmission Date: 20211014
  Serious: No
  Sender: FDA-Public Use
  Company Number: US-FARMAPROD-202104-0611

PATIENT
  Sex: Female

DRUGS (13)
  1. POTASSIUM [Concomitant]
     Active Substance: POTASSIUM
  2. ATORVASTATIN [Concomitant]
     Active Substance: ATORVASTATIN
  3. ANASTROZOLE. [Concomitant]
     Active Substance: ANASTROZOLE
  4. DORZOLAMIDE [Concomitant]
     Active Substance: DORZOLAMIDE
  5. DIPHENOXYLATE/ATROPINE [Concomitant]
     Active Substance: ATROPINE\DIPHENOXYLATE
  6. SYSTANE (HYPROMELLOSE 2910 (4000 MPA.S)) [Concomitant]
     Active Substance: HYPROMELLOSE 2910 (4000 MPA.S)
  7. MOXIFLOXACIN. [Concomitant]
     Active Substance: MOXIFLOXACIN
  8. CALCIUM [Concomitant]
     Active Substance: CALCIUM
  9. VITAMIN D3 [Concomitant]
     Active Substance: CHOLECALCIFEROL
  10. INSULIN ASPART [Concomitant]
     Active Substance: INSULIN ASPART
  11. OXERVATE [Suspect]
     Active Substance: CENEGERMIN-BKBJ
     Indication: NEUROTROPHIC KERATOPATHY
     Route: 047
  12. VENLAFAXINE [Concomitant]
     Active Substance: VENLAFAXINE HYDROCHLORIDE
  13. TRAJENTA [Concomitant]
     Active Substance: LINAGLIPTIN

REACTIONS (1)
  - Pain [Unknown]
